FAERS Safety Report 5503250-6 (Version None)
Quarter: 2007Q4

REPORT INFORMATION
  Report Type: 
  Country: None (occurrence: None)
  Receive Date: 20071031
  Receipt Date: 20071022
  Transmission Date: 20080405
  Serious: Yes (Other)
  Sender: FDA-Public Use
  Company Number: US-PFIZER INC-2007043110

PATIENT
  Sex: Female
  Weight: 74.8 kg

DRUGS (1)
  1. CELEBREX [Suspect]
     Indication: BACK INJURY

REACTIONS (3)
  - CARDIOVASCULAR DISORDER [None]
  - FACIAL PALSY [None]
  - RETINAL DISORDER [None]
